FAERS Safety Report 4716009-4 (Version None)
Quarter: 2005Q3

REPORT INFORMATION
  Report Type: 
  Country: None (occurrence: None)
  Receive Date: 20050718
  Receipt Date: 20050707
  Transmission Date: 20060218
  Serious: Yes (Other)
  Sender: FDA-Public Use
  Company Number: GB-GLAXOSMITHKLINE-B0387170A

PATIENT
  Age: 46 Year
  Sex: Male
  Weight: 87 kg

DRUGS (2)
  1. FLIXONASE [Suspect]
     Indication: SEASONAL ALLERGY
     Route: 045
  2. FLIXONASE [Concomitant]

REACTIONS (1)
  - LYMPHADENITIS [None]
